FAERS Safety Report 9665717 (Version 1)
Quarter: 2013Q4

REPORT INFORMATION
  Report Type: Spontaneous
  Country: US (occurrence: None)
  Receive Date: 20131031
  Receipt Date: 20131031
  Transmission Date: 20140711
  Serious: Yes (Other)
  Sender: FDA-Public Use
  Company Number: None

PATIENT
  Age: 43 Year
  Sex: Male
  Weight: 76.66 kg

DRUGS (13)
  1. VALACYCLOVIR [Suspect]
     Indication: HERPES ZOSTER
     Dosage: VALACYCLOVIR/1 TAB TID ORAL
     Route: 048
  2. CARBAMAZEPINE [Concomitant]
  3. ZONISAMIDE [Concomitant]
  4. DIAZEPAM RECTAL GEL [Concomitant]
  5. ALENDRONATE (FOSAMAX) [Concomitant]
  6. CALCIUM CHEWABLE [Concomitant]
  7. MULTIPLE VITAMIN [Concomitant]
  8. VITAMIN D [Concomitant]
  9. DOCUSATE SODIUM [Concomitant]
  10. LORATADINE [Concomitant]
  11. MONTELUKAST (SINGULAIR) [Concomitant]
  12. FLUTICASONE NS [Concomitant]
  13. SALINE NASAL SPRAY [Concomitant]

REACTIONS (3)
  - Rash maculo-papular [None]
  - Rash pustular [None]
  - Stevens-Johnson syndrome [None]
